FAERS Safety Report 10404145 (Version 1)
Quarter: 2014Q1

REPORT INFORMATION
  Report Type: Spontaneous
  Country: US (occurrence: None)
  Receive Date: 20130916
  Receipt Date: 20130916
  Transmission Date: 20141002
  Serious: Yes (Hospitalization)
  Sender: FDA-Public Use
  Company Number: JPI-P-030159

PATIENT
  Age: 33 Year
  Sex: Female
  Weight: 81.65 kg

DRUGS (4)
  1. XYREM (500 MILLIGRAM/MILLILITERS, SOLUTION) (SODIUM OXYBATE) [Suspect]
     Indication: NARCOLEPSY
     Dosage: 1.5 GM, ONCE OR TWICE NIGHTLY, ORAL
     Dates: start: 201210, end: 201301
  2. XYREM (500 MILLIGRAM/MILLILITERS, SOLUTION) (SODIUM OXYBATE) [Suspect]
     Indication: SOMNOLENCE
     Dosage: 1.5 GM, ONCE OR TWICE NIGHTLY, ORAL
     Dates: start: 201210, end: 201301
  3. PAROXETINE HYDROCHLORIDE [Concomitant]
  4. VENLAFAXINE HYDROCHLORIDE [Concomitant]

REACTIONS (2)
  - Anxiety [None]
  - Condition aggravated [None]
